FAERS Safety Report 8545095-9 (Version None)
Quarter: 2012Q3

REPORT INFORMATION
  Report Type: 
  Country: None (occurrence: None)
  Receive Date: 20120727
  Receipt Date: 20120724
  Transmission Date: 20120928
  Serious: Yes (Death)
  Sender: FDA-Public Use
  Company Number: ES-ROCHE-1092973

PATIENT
  Age: 74 Year
  Weight: 62 kg

DRUGS (1)
  1. AVASTIN [Suspect]
     Indication: NON-SMALL CELL LUNG CANCER
     Dates: end: 20090310

REACTIONS (1)
  - GENERAL PHYSICAL HEALTH DETERIORATION [None]
